FAERS Safety Report 6691249-6 (Version None)
Quarter: 2010Q2

REPORT INFORMATION
  Report Type: 
  Country: None (occurrence: None)
  Receive Date: 20100422
  Receipt Date: 20100413
  Transmission Date: 20101027
  Serious: No
  Sender: FDA-Public Use
  Company Number: US-BIOGENIDEC-2010BI012581

PATIENT
  Age: 52 Year
  Sex: Female

DRUGS (3)
  1. AVONEX [Suspect]
     Indication: MULTIPLE SCLEROSIS
     Route: 030
     Dates: start: 20100413
  2. XANAX [Concomitant]
  3. ZOLOFT [Concomitant]

REACTIONS (4)
  - ABDOMINAL PAIN [None]
  - DISORIENTATION [None]
  - HEADACHE [None]
  - NAUSEA [None]
